FAERS Safety Report 9360724 (Version 4)
Quarter: 2013Q3

REPORT INFORMATION
  Report Type: Spontaneous
  Country: JP (occurrence: JP)
  Receive Date: 20130621
  Receipt Date: 20130802
  Transmission Date: 20140515
  Serious: Yes (Hospitalization, Other)
  Sender: FDA-Public Use
  Company Number: JP-JNJFOC-20130610049

PATIENT
  Age: 67 Year
  Sex: Female
  Weight: 58 kg

DRUGS (7)
  1. GOLIMUMAB [Suspect]
     Indication: RHEUMATOID ARTHRITIS
     Route: 058
     Dates: start: 20120305, end: 20130319
  2. PROGRAF [Suspect]
     Indication: PRODUCT USED FOR UNKNOWN INDICATION
     Route: 048
  3. LIPITOR [Concomitant]
     Route: 048
  4. PLAVIX [Concomitant]
     Route: 048
  5. GASPORT [Concomitant]
     Route: 048
  6. LOXOPROFEN [Concomitant]
     Route: 048
  7. RECALBON [Concomitant]
     Route: 048

REACTIONS (3)
  - Herpes zoster [Recovered/Resolved]
  - VIIth nerve paralysis [Recovering/Resolving]
  - Hearing impaired [Recovering/Resolving]
